FAERS Safety Report 17637028 (Version 1)
Quarter: 2020Q2

REPORT INFORMATION
  Report Type: Spontaneous
  Country: US (occurrence: US)
  Receive Date: 20200406
  Receipt Date: 20200406
  Transmission Date: 20200713
  Serious: No
  Sender: FDA-Public Use
  Company Number: None

PATIENT
  Age: 64 Year
  Sex: Male
  Weight: 107.32 kg

DRUGS (9)
  1. ASPIRIN 81MG [Concomitant]
     Active Substance: ASPIRIN
  2. METOPROLOL 50MG [Concomitant]
     Active Substance: METOPROLOL
  3. FLECAINIDE 150MG [Concomitant]
  4. TYLENOL [Concomitant]
     Active Substance: ACETAMINOPHEN
  5. SUTENT [Suspect]
     Active Substance: SUNITINIB MALATE
  6. FLUOXETINE [Concomitant]
     Active Substance: FLUOXETINE HYDROCHLORIDE
  7. MELATONIN 10MG [Concomitant]
  8. ONDANSETRON 8MG [Concomitant]
     Active Substance: ONDANSETRON
  9. PANTOPRAZOLE 40MG [Concomitant]
     Active Substance: PANTOPRAZOLE SODIUM

REACTIONS (1)
  - Blood pressure increased [None]

NARRATIVE: CASE EVENT DATE: 20200406
